FAERS Safety Report 20376260 (Version 1)
Quarter: 2022Q1

REPORT INFORMATION
  Report Type: Spontaneous
  Country: US (occurrence: None)
  Receive Date: 20220125
  Receipt Date: 20220125
  Transmission Date: 20220424
  Serious: No
  Sender: FDA-Public Use
  Company Number: None

PATIENT
  Sex: Female
  Weight: 70.65 kg

DRUGS (19)
  1. CAPECITABINE [Suspect]
     Active Substance: CAPECITABINE
     Indication: Pancreatic carcinoma
     Dosage: FREQUENCY : TWICE A DAY;?
     Route: 048
  2. DICYCLOMINE HYDROCHLORIDE [Concomitant]
     Active Substance: DICYCLOMINE HYDROCHLORIDE
  3. LORAZEPAM [Concomitant]
     Active Substance: LORAZEPAM
  4. ZOFRAN [Concomitant]
     Active Substance: ONDANSETRON HYDROCHLORIDE
  5. PROCHLORPERAZINE MALEATE [Concomitant]
     Active Substance: PROCHLORPERAZINE MALEATE
  6. MORPHINE SULFATE [Concomitant]
     Active Substance: MORPHINE SULFATE
  7. SODIUM CHLORIDE [Concomitant]
     Active Substance: SODIUM CHLORIDE
  8. POTASSIUM CHLORIDE [Concomitant]
     Active Substance: POTASSIUM CHLORIDE
  9. LACTULOSE [Concomitant]
     Active Substance: LACTULOSE
  10. MEGESTROL ACETATE [Concomitant]
     Active Substance: MEGESTROL ACETATE
  11. LISINOPRIL [Concomitant]
     Active Substance: LISINOPRIL
  12. GABAPENTIN [Concomitant]
     Active Substance: GABAPENTIN
  13. MIRALAX [Concomitant]
     Active Substance: POLYETHYLENE GLYCOL 3350
  14. COLACE [Concomitant]
     Active Substance: DOCUSATE SODIUM
  15. OXALIPLATIN [Concomitant]
     Active Substance: OXALIPLATIN
  16. IRINOTECAN HYDROCHLORIDE [Concomitant]
     Active Substance: IRINOTECAN HYDROCHLORIDE
  17. LEVOLEUCOVORIN CALCIUM [Concomitant]
     Active Substance: LEVOLEUCOVORIN CALCIUM
  18. FLUOROURACIL [Concomitant]
     Active Substance: FLUOROURACIL
  19. PEPCID [Concomitant]
     Active Substance: FAMOTIDINE

REACTIONS (1)
  - SARS-CoV-2 test positive [None]
